FAERS Safety Report 5471321-9 (Version None)
Quarter: 2007Q3

REPORT INFORMATION
  Report Type: 
  Country: None (occurrence: None)
  Receive Date: 20070928
  Receipt Date: 20060828
  Transmission Date: 20080115
  Serious: Yes (Hospitalization)
  Sender: FDA-Public Use
  Company Number: US-BRISTOL-MYERS SQUIBB COMPANY-13450374

PATIENT
  Age: 53 Year
  Sex: Male

DRUGS (6)
  1. DEFINITY [Suspect]
     Indication: ECHOCARDIOGRAM
     Route: 042
     Dates: start: 20060720, end: 20060720
  2. COZAAR [Concomitant]
     Route: 048
  3. ASPIRIN [Concomitant]
     Route: 048
  4. PLAVIX [Concomitant]
     Route: 048
  5. VYTORIN [Concomitant]
     Dosage: DOSAGE: 10/40 MG
     Route: 048
  6. NAPROSYN [Concomitant]

REACTIONS (2)
  - BACK PAIN [None]
  - RENAL PAIN [None]
